FAERS Safety Report 6428329-6 (Version None)
Quarter: 2009Q4

REPORT INFORMATION
  Report Type: 
  Country: None (occurrence: None)
  Receive Date: 20091104
  Receipt Date: 20091104
  Transmission Date: 20100525
  Serious: Yes (Other)
  Sender: FDA-Public Use
  Company Number: None

PATIENT
  Age: 30 Year
  Sex: Male

DRUGS (2)
  1. CISPLATIN [Suspect]
     Indication: TESTIS CANCER
     Dosage: 46 MG IV
     Route: 042
     Dates: start: 20090413
  2. ETOPOSIDE [Suspect]
     Indication: TESTIS CANCER
     Dosage: 230 MG IV
     Route: 042
     Dates: start: 20090413

REACTIONS (3)
  - HEPATIC ENZYME INCREASED [None]
  - NAUSEA [None]
  - TRANSAMINASES INCREASED [None]
